FAERS Safety Report 6314215-9 (Version None)
Quarter: 2009Q3

REPORT INFORMATION
  Report Type: 
  Country: None (occurrence: None)
  Receive Date: 20090817
  Receipt Date: 20090804
  Transmission Date: 20100115
  Serious: Yes (Hospitalization)
  Sender: FDA-Public Use
  Company Number: 2008AL010409

PATIENT
  Age: 6 Year
  Sex: Female
  Weight: 30 kg

DRUGS (6)
  1. DIGOXIN [Suspect]
     Dosage: 50MCG, BID, PO
     Route: 048
  2. LABETALOL HCL [Concomitant]
  3. LASIX [Concomitant]
  4. ALDACTONE [Concomitant]
  5. CAPTOPRIL [Concomitant]
  6. CARVEDILOL [Concomitant]

REACTIONS (17)
  - CARDIAC ARREST [None]
  - CARDIOMYOPATHY [None]
  - CONGESTIVE CARDIOMYOPATHY [None]
  - CROUP INFECTIOUS [None]
  - DYSPNOEA [None]
  - FALL [None]
  - FATIGUE [None]
  - HYPOGLYCAEMIA [None]
  - HYPOVENTILATION [None]
  - ILL-DEFINED DISORDER [None]
  - MENTAL STATUS CHANGES [None]
  - MULTIPLE INJURIES [None]
  - MYOCARDIAL INFARCTION [None]
  - PYREXIA [None]
  - SINUS TACHYCARDIA [None]
  - VENTRICULAR FIBRILLATION [None]
  - VENTRICULAR TACHYCARDIA [None]
